FAERS Safety Report 4654404-2 (Version None)
Quarter: 2005Q2

REPORT INFORMATION
  Report Type: 
  Country: None (occurrence: None)
  Receive Date: 20050408
  Receipt Date: 20050104
  Transmission Date: 20051028
  Serious: No
  Sender: FDA-Public Use
  Company Number: 230016K05USA

PATIENT
  Sex: Male

DRUGS (1)
  1. REBIF [Suspect]
     Indication: MULTIPLE SCLEROSIS

REACTIONS (4)
  - BRAIN NEOPLASM [None]
  - INJECTION SITE PAIN [None]
  - MUSCLE SPASMS [None]
  - VISUAL DISTURBANCE [None]
